FAERS Safety Report 12509544 (Version 1)
Quarter: 2016Q2

REPORT INFORMATION
  Report Type: Spontaneous
  Country: DE (occurrence: DE)
  Receive Date: 20160629
  Receipt Date: 20160629
  Transmission Date: 20160815
  Serious: Yes (Congenital Anomaly, Other)
  Sender: FDA-Public Use
  Company Number: GXKR2016DE002935

PATIENT

DRUGS (2)
  1. VENLAFAXINE [Suspect]
     Active Substance: VENLAFAXINE HYDROCHLORIDE
     Indication: ANXIETY DISORDER
     Dosage: 125 [MG/D ]
     Route: 064
     Dates: start: 20150427, end: 20160124
  2. FRAGMIN [Concomitant]
     Active Substance: DALTEPARIN SODIUM
     Indication: FACTOR V LEIDEN MUTATION
     Dosage: PROBABLY COMPLETE PREGNANCY
     Route: 064

REACTIONS (4)
  - Infantile apnoea [Recovered/Resolved]
  - Selective eating disorder [Recovered/Resolved]
  - Haemangioma congenital [Not Recovered/Not Resolved]
  - Bradycardia neonatal [Recovered/Resolved]
